FAERS Safety Report 8314873-3 (Version None)
Quarter: 2012Q2

REPORT INFORMATION
  Report Type: 
  Country: None (occurrence: None)
  Receive Date: 20120426
  Receipt Date: 20081117
  Transmission Date: 20120825
  Serious: Yes (Hospitalization)
  Sender: FDA-Public Use
  Company Number: US-TEVA-US025061

PATIENT
  Age: 14 Year
  Sex: Female

DRUGS (4)
  1. PROVIGIL [Suspect]
     Route: 048
  2. DEPAKOTE [Concomitant]
  3. LEXAPRO [Suspect]
  4. AMITRIPTYLINE HCL [Concomitant]

REACTIONS (10)
  - DELIRIUM [None]
  - CLONUS [None]
  - DRY MOUTH [None]
  - HYPERVIGILANCE [None]
  - SUICIDE ATTEMPT [None]
  - HYPERHIDROSIS [None]
  - ANXIETY [None]
  - DIARRHOEA [None]
  - INTENTIONAL OVERDOSE [None]
  - TACHYCARDIA [None]
